FAERS Safety Report 6007124-6 (Version None)
Quarter: 2008Q4

REPORT INFORMATION
  Report Type: 
  Country: None (occurrence: None)
  Receive Date: 20081217
  Receipt Date: 20080123
  Transmission Date: 20090506
  Serious: No
  Sender: FDA-Public Use
  Company Number: US-ASTRAZENECA-2008UW01678

PATIENT
  Age: 18251 Day
  Sex: Male

DRUGS (1)
  1. CRESTOR [Suspect]
     Route: 048
     Dates: start: 20070621

REACTIONS (3)
  - BLINDNESS [None]
  - INCORRECT DOSE ADMINISTERED [None]
  - INSOMNIA [None]
